FAERS Safety Report 5916101-2 (Version None)
Quarter: 2008Q4

REPORT INFORMATION
  Report Type: 
  Country: None (occurrence: None)
  Receive Date: 20081013
  Receipt Date: 20081002
  Transmission Date: 20090506
  Serious: Yes (Other)
  Sender: FDA-Public Use
  Company Number: US-JNJFOC-20081000866

PATIENT
  Sex: Female
  Weight: 91.63 kg

DRUGS (10)
  1. REMICADE [Suspect]
     Route: 042
  2. REMICADE [Suspect]
     Indication: PSORIATIC ARTHROPATHY
     Route: 042
  3. REMICADE [Suspect]
     Indication: PSORIASIS
     Route: 042
  4. BENADRYL [Concomitant]
     Indication: PREMEDICATION
  5. TYLENOL (CAPLET) [Concomitant]
     Indication: PREMEDICATION
  6. SYNTHROID [Concomitant]
  7. VITAMIN D [Concomitant]
  8. VITAMIN B-12 [Concomitant]
  9. DARVOCET [Concomitant]
     Indication: PAIN
  10. NAPROSYN [Concomitant]
     Indication: PAIN

REACTIONS (4)
  - EAR CONGESTION [None]
  - EYE SWELLING [None]
  - PRURITUS [None]
  - THROAT TIGHTNESS [None]
